FAERS Safety Report 16484036 (Version 1)
Quarter: 2019Q3

REPORT INFORMATION
  Report Type: Spontaneous
  Country: US (occurrence: US)
  Receive Date: 20190625
  Receipt Date: 20190625
  Transmission Date: 20191004
  Serious: No
  Sender: FDA-Public Use
  Company Number: None

PATIENT
  Age: 68 Year
  Sex: Female
  Weight: 84.6 kg

DRUGS (1)
  1. ETODOLAC. [Suspect]
     Active Substance: ETODOLAC

REACTIONS (3)
  - Product label on wrong product [None]
  - Incorrect dose administered [None]
  - Product dispensing error [None]

NARRATIVE: CASE EVENT DATE: 20190621
